FAERS Safety Report 23079172 (Version 1)
Quarter: 2023Q4

REPORT INFORMATION
  Report Type: Spontaneous
  Country: PL (occurrence: PL)
  Receive Date: 20231018
  Receipt Date: 20231018
  Transmission Date: 20240110
  Serious: Yes (Hospitalization)
  Sender: FDA-Public Use
  Company Number: PL-CELLTRION HEALTHCARE HUNGARY KFT-2023PL019071

PATIENT
  Age: 82 Year
  Sex: Female
  Weight: 53.5 kg

DRUGS (7)
  1. RITUXIMAB [Suspect]
     Active Substance: RITUXIMAB
     Indication: Follicular lymphoma
     Dosage: 375 MG/M2 FOR 5 CYCLES
     Route: 042
     Dates: start: 20230615
  2. RITUXIMAB [Suspect]
     Active Substance: RITUXIMAB
     Dosage: 375 MG/M2 (572MG) FOR 5 CYCLES (LAST DOSE PRIOR TO THE SERIOUS ADVERSE EVENTS)
     Route: 042
     Dates: start: 20230906
  3. TAFASITAMAB [Suspect]
     Active Substance: TAFASITAMAB
     Indication: Follicular lymphoma
     Dosage: 12 MG/KG FOR 12 CYCLES WEEKLY THE FIRST 3 CYCLES AND Q2W THEREAFTER
     Dates: start: 20230615
  4. TAFASITAMAB [Suspect]
     Active Substance: TAFASITAMAB
     Dosage: 12 MG/KG FOR 12 CYCLES WEEKLY THE FIRST 3 CYCLES AND Q2W THEREAFTER
     Dates: start: 20230906
  5. LENALIDOMIDE [Suspect]
     Active Substance: LENALIDOMIDE
     Indication: Follicular lymphoma
     Dosage: 10 MG, QD ON DAYS 1 TO 21 FOR 12 CYCLES
     Route: 048
     Dates: start: 20230615
  6. LENALIDOMIDE [Suspect]
     Active Substance: LENALIDOMIDE
     Dosage: 10 MG, QD ON DAYS 1 TO 21 FOR 12 CYCLES (PRIOR TO THE EVENT UPPER RESPIRATORY INFECTION)
     Route: 048
     Dates: start: 20230919
  7. LENALIDOMIDE [Suspect]
     Active Substance: LENALIDOMIDE
     Dosage: 10 MG, QD ON DAYS 1 TO 21 FOR 12 CYCLES (PRIOR TO THE EVENT ABDOMINAL PAIN)
     Route: 048
     Dates: start: 20230921

REACTIONS (8)
  - Upper respiratory tract infection [Not Recovered/Not Resolved]
  - Respiratory tract infection viral [Unknown]
  - C-reactive protein increased [Unknown]
  - Chest X-ray abnormal [Unknown]
  - Pyrexia [Unknown]
  - Dyspnoea [Unknown]
  - Abdominal pain [Recovering/Resolving]
  - Constipation [Recovering/Resolving]

NARRATIVE: CASE EVENT DATE: 20230920
